FAERS Safety Report 4847232-6 (Version None)
Quarter: 2005Q4

REPORT INFORMATION
  Report Type: 
  Country: None (occurrence: None)
  Receive Date: 20051207
  Receipt Date: 20050225
  Transmission Date: 20060501
  Serious: Yes (Congenital Anomaly)
  Sender: FDA-Public Use
  Company Number: FR-GLAXOSMITHKLINE-B0374762A

PATIENT
  Sex: Male
  Weight: 3.1 kg

DRUGS (2)
  1. LAMOTRIGINE [Suspect]
     Indication: EPILEPSY
     Dosage: 100MG PER DAY
  2. SPECIAFOLDINE [Concomitant]
     Indication: EPILEPSY
     Dosage: 5MG PER DAY
     Dates: start: 20031001, end: 20040416

REACTIONS (3)
  - BENIGN CONGENITAL HYPOTONIA [None]
  - DRUG EXPOSURE DURING PREGNANCY [None]
  - FACIAL PALSY [None]
